FAERS Safety Report 20110041 (Version 1)
Quarter: 2021Q4

REPORT INFORMATION
  Report Type: Spontaneous
  Country: US (occurrence: US)
  Receive Date: 20211124
  Receipt Date: 20211124
  Transmission Date: 20220303
  Serious: No
  Sender: FDA-Public Use
  Company Number: US-INCYTE CORPORATION-2021IN010704

PATIENT

DRUGS (2)
  1. JAKAFI [Suspect]
     Active Substance: RUXOLITINIB
     Indication: Hepatitis C
     Dosage: 15 MILLIGRAM, BID
     Route: 048
  2. PERCOCET [Concomitant]
     Active Substance: ACETAMINOPHEN\OXYCODONE HYDROCHLORIDE
     Indication: Product used for unknown indication
     Dosage: 10-325MG
     Route: 065

REACTIONS (5)
  - Asthenia [Unknown]
  - Abdominal pain [Unknown]
  - Product availability issue [Unknown]
  - Off label use [Unknown]
  - Fatigue [Unknown]
